FAERS Safety Report 4400890-2 (Version None)
Quarter: 2004Q3

REPORT INFORMATION
  Report Type: 
  Country: None (occurrence: None)
  Receive Date: 20040907
  Receipt Date: 20030723
  Transmission Date: 20050211
  Serious: Yes (Hospitalization)
  Sender: FDA-Public Use
  Company Number: US-BRISTOL-MYERS SQUIBB COMPANY-12333613

PATIENT
  Sex: Male

DRUGS (6)
  1. COUMADIN [Suspect]
     Indication: COAGULOPATHY
     Route: 048
     Dates: start: 20030718
  2. TYLENOL [Concomitant]
  3. MS CONTIN [Concomitant]
  4. MORPHINE [Concomitant]
  5. TEQUIN [Concomitant]
  6. LOVENOX [Concomitant]

REACTIONS (1)
  - INTERNATIONAL NORMALISED RATIO ABNORMAL [None]
